FAERS Safety Report 8318351-7 (Version None)
Quarter: 2012Q2

REPORT INFORMATION
  Report Type: 
  Country: None (occurrence: None)
  Receive Date: 20120427
  Receipt Date: 20120416
  Transmission Date: 20120825
  Serious: Yes (Hospitalization, Congenital Anomaly)
  Sender: FDA-Public Use
  Company Number: US-ROCHE-GNE323487

PATIENT
  Sex: Male

DRUGS (11)
  1. PREVACID [Concomitant]
     Indication: GASTROOESOPHAGEAL REFLUX DISEASE
     Dosage: DOSE: 15 MI
     Route: 048
     Dates: start: 20110323, end: 20110329
  2. ZANTAC [Concomitant]
     Indication: GASTROOESOPHAGEAL REFLUX DISEASE
     Dosage: UNK
     Route: 048
     Dates: start: 20110329, end: 20110407
  3. XOPENEX [Concomitant]
     Indication: LARYNGOMALACIA
  4. ALBUTEROL [Concomitant]
     Route: 055
     Dates: start: 20110423, end: 20110425
  5. XOPENEX [Concomitant]
     Indication: BRONCHIOLITIS
  6. ALBUTEROL [Concomitant]
     Indication: BRONCHIOLITIS
     Route: 055
     Dates: start: 20110329, end: 20110407
  7. OMALIZUMAB [Suspect]
     Indication: ASTHMA
     Dosage: FREQUENCY: NOT REPORTED
     Route: 064
     Dates: start: 20060324
  8. PREVACID [Concomitant]
     Dates: start: 20110407
  9. ALBUTEROL [Concomitant]
     Route: 055
     Dates: start: 20110529, end: 20110601
  10. XOPENEX [Concomitant]
     Indication: BRONCHOMALACIA
  11. XOPENEX [Concomitant]
     Indication: TRACHEOMALACIA
     Route: 055
     Dates: start: 20110601

REACTIONS (1)
  - LARYNGOMALACIA [None]
